FAERS Safety Report 5099329-6 (Version None)
Quarter: 2006Q3

REPORT INFORMATION
  Report Type: 
  Country: None (occurrence: None)
  Receive Date: 20060726
  Receipt Date: 20060330
  Transmission Date: 20061208
  Serious: No
  Sender: FDA-Public Use
  Company Number: 012195

PATIENT
  Age: 41 Year
  Sex: Male

DRUGS (4)
  1. PRIALT [Suspect]
     Indication: COMPLEX REGIONAL PAIN SYNDROME
     Dosage: 0.09 UG, ONCE/HOUR, INTRATHECAL
     Route: 037
     Dates: start: 20051012, end: 20060314
  2. MORPHINE [Concomitant]
  3. PERCOCET /00867901/(OXYCODONE HYDROCHLORIDE, PARACETAMOL) [Concomitant]
  4. VALIUM /00017001/(DIAZEPAM) [Concomitant]

REACTIONS (2)
  - BLOOD CREATINE PHOSPHOKINASE INCREASED [None]
  - MUSCULAR WEAKNESS [None]
